FAERS Safety Report 7113857-0 (Version None)
Quarter: 2010Q4

REPORT INFORMATION
  Report Type: 
  Country: None (occurrence: None)
  Receive Date: 20101119
  Receipt Date: 20101110
  Transmission Date: 20110411
  Serious: Yes (Other)
  Sender: FDA-Public Use
  Company Number: US-PFIZER INC-2010148344

PATIENT
  Age: 35 Year
  Sex: Female

DRUGS (1)
  1. CHANTIX [Suspect]
     Dosage: UNK

REACTIONS (6)
  - AGGRESSION [None]
  - APATHY [None]
  - CONDITION AGGRAVATED [None]
  - DEPRESSED MOOD [None]
  - INSOMNIA [None]
  - MENTAL DISORDER [None]
